FAERS Safety Report 6670649-4 (Version None)
Quarter: 2010Q2

REPORT INFORMATION
  Report Type: 
  Country: None (occurrence: None)
  Receive Date: 20100405
  Receipt Date: 20100324
  Transmission Date: 20101027
  Serious: Yes (Death, Life-Threatening, Hospitalization)
  Sender: FDA-Public Use
  Company Number: 2010AC000231

PATIENT
  Age: 66 Year
  Sex: Female

DRUGS (19)
  1. DIGOXIN [Suspect]
     Dosage: PO
     Route: 048
  2. AMIODARONE [Concomitant]
  3. SPIRONOLACTONE [Concomitant]
  4. METOPROLOL TARTRATE [Concomitant]
  5. ASPIRIN [Concomitant]
  6. ZOCOR [Concomitant]
  7. LEVOTHYROXINE [Concomitant]
  8. MAXERAN [Concomitant]
  9. INSULIN [Concomitant]
  10. FUROSEMIDE [Concomitant]
  11. PANTOPRAZOLE SODIUM [Concomitant]
  12. VITAMIN D [Concomitant]
  13. CALCIUM CARBONATE [Concomitant]
  14. TEMAZEPAM [Concomitant]
  15. QUETIAPINE [Concomitant]
  16. SLOW-K [Concomitant]
  17. SERTRALINE HCL [Concomitant]
  18. INDOMETHACIN SODIUM [Concomitant]
  19. WARFARIN SODIUM [Concomitant]

REACTIONS (7)
  - DIARRHOEA HAEMORRHAGIC [None]
  - DIZZINESS [None]
  - GOUT [None]
  - HYPERKALAEMIA [None]
  - NODAL RHYTHM [None]
  - RENAL FAILURE ACUTE [None]
  - THERAPEUTIC AGENT TOXICITY [None]
